FAERS Safety Report 5127928-1 (Version None)
Quarter: 2006Q4

REPORT INFORMATION
  Report Type: 
  Country: None (occurrence: None)
  Receive Date: 20061016
  Receipt Date: 20061006
  Transmission Date: 20070319
  Serious: Yes (Hospitalization, Other)
  Sender: FDA-Public Use
  Company Number: US-ABBOTT-06P-163-0346347-00

PATIENT
  Sex: Female

DRUGS (18)
  1. HUMIRA [Suspect]
     Indication: RHEUMATOID ARTHRITIS
     Route: 058
     Dates: start: 20060413, end: 20060701
  2. HUMIRA [Suspect]
     Dosage: PEN
     Route: 058
     Dates: start: 20061005
  3. METHOTREXATE [Concomitant]
     Indication: RHEUMATOID ARTHRITIS
     Route: 048
     Dates: end: 20061009
  4. METOPROLOL TARTRATE [Concomitant]
     Indication: BLOOD PRESSURE
     Route: 048
  5. DIGOXIN [Concomitant]
     Indication: CARDIAC DISORDER
  6. AMLODIPINE BESYLATE [Concomitant]
     Indication: BLOOD PRESSURE
  7. FOLIC ACID [Concomitant]
     Indication: VITAMIN SUPPLEMENTATION
  8. ULTRACET [Concomitant]
     Indication: PAIN
  9. ESTROGENS CONJUGATED [Concomitant]
     Indication: HORMONE REPLACEMENT THERAPY
  10. FUROSEMIDE [Concomitant]
     Indication: BLOOD PRESSURE
  11. GEMFIBROZIL [Concomitant]
     Indication: BLOOD CHOLESTEROL
  12. HYDROXYCHLOROQUINE SULFATE [Concomitant]
     Indication: RHEUMATOID ARTHRITIS
  13. CIMETIDINE [Concomitant]
     Indication: GASTRIC DISORDER
  14. CYCLOBENZAP [Concomitant]
     Indication: INSOMNIA
  15. FERROUS SULFATE TAB [Concomitant]
     Indication: BLOOD IRON
  16. EYE CAPS [Concomitant]
     Indication: VITAMIN SUPPLEMENTATION
  17. MULTIVITAMIN [Concomitant]
     Indication: VITAMIN SUPPLEMENTATION
  18. LEVOTHYROXINE SODIUM [Concomitant]
     Indication: HYPOTHYROIDISM
     Dates: start: 19720101

REACTIONS (6)
  - ACCIDENTAL EXPOSURE [None]
  - ARTHRALGIA [None]
  - ARTHRITIS [None]
  - JOINT SWELLING [None]
  - PROCEDURAL PAIN [None]
  - SCAR [None]
